FAERS Safety Report 19146560 (Version 1)
Quarter: 2021Q2

REPORT INFORMATION
  Report Type: Spontaneous
  Country: CA (occurrence: CA)
  Receive Date: 20210416
  Receipt Date: 20210416
  Transmission Date: 20210717
  Serious: Yes (Life-Threatening, Hospitalization, Other)
  Sender: FDA-Public Use
  Company Number: CA-PFIZER INC-2021382129

PATIENT
  Age: 3 Year
  Sex: Male
  Weight: 16 kg

DRUGS (22)
  1. HYDROCORTISONE. [Concomitant]
     Active Substance: HYDROCORTISONE
  2. EMEND [Concomitant]
     Active Substance: APREPITANT
  3. TRIMETHOPRIM SULFAMETHOXAZOLE [Concomitant]
     Active Substance: SULFAMETHOXAZOLE\TRIMETHOPRIM
  4. VANCOMYCIN [Concomitant]
     Active Substance: VANCOMYCIN
  5. CYTARABINE INJECTION [Concomitant]
     Active Substance: CYTARABINE
  6. VINCRISTINE SULFATE. [Suspect]
     Active Substance: VINCRISTINE SULFATE
     Indication: ATYPICAL TERATOID/RHABDOID TUMOUR OF CNS
     Dosage: 1 MG
     Route: 042
  7. ACETAMINOPHEN. [Concomitant]
     Active Substance: ACETAMINOPHEN
  8. CALCIUM + VITAMIN D3 [Concomitant]
     Active Substance: CALCIUM CARBONATE\CHOLECALCIFEROL
  9. DIPHENHYDRAMINE. [Concomitant]
     Active Substance: DIPHENHYDRAMINE
  10. MESNA. [Concomitant]
     Active Substance: MESNA
  11. CISPLATIN. [Suspect]
     Active Substance: CISPLATIN
     Indication: ATYPICAL TERATOID/RHABDOID TUMOUR OF CNS
     Dosage: 70 MG
     Route: 042
  12. CYCLOPHOSPHAMIDE. [Suspect]
     Active Substance: CYCLOPHOSPHAMIDE
     Indication: ATYPICAL TERATOID/RHABDOID TUMOUR OF CNS
     Dosage: 1200 MG
     Route: 042
  13. ONDANSETRON [Concomitant]
     Active Substance: ONDANSETRON
  14. ETOPOSIDE. [Suspect]
     Active Substance: ETOPOSIDE
     Indication: ATYPICAL TERATOID/RHABDOID TUMOUR OF CNS
     Dosage: 50 MG
     Route: 042
  15. CICLESONIDE [Concomitant]
     Active Substance: CICLESONIDE
  16. FILGRASTIM [Concomitant]
     Active Substance: FILGRASTIM
  17. MAGNESIUM [Concomitant]
     Active Substance: MAGNESIUM
  18. METOCLOPRAMIDE. [Concomitant]
     Active Substance: METOCLOPRAMIDE
  19. MORPHINE [Concomitant]
     Active Substance: MORPHINE
  20. SENNOSIDES. [Concomitant]
     Active Substance: SENNOSIDES
  21. FUROSEMIDE. [Concomitant]
     Active Substance: FUROSEMIDE
  22. POLYETHYLENE GLYCOL 3350. [Concomitant]
     Active Substance: POLYETHYLENE GLYCOL 3350

REACTIONS (2)
  - Aplastic anaemia [Recovered/Resolved]
  - Febrile neutropenia [Recovered/Resolved]
